FAERS Safety Report 8804075 (Version 4)
Quarter: 2013Q4

REPORT INFORMATION
  Report Type: Spontaneous
  Country: US (occurrence: US)
  Receive Date: 20120923
  Receipt Date: 20131001
  Transmission Date: 20140711
  Serious: Yes (Hospitalization, Other)
  Sender: FDA-Public Use
  Company Number: US-BIOGENIDEC-2012BI031401

PATIENT
  Age: 22 Year
  Sex: Female
  Weight: 53 kg

DRUGS (4)
  1. TYSABRI [Suspect]
     Indication: MULTIPLE SCLEROSIS
     Route: 042
     Dates: start: 20120620, end: 20120719
  2. BACLOFEN [Concomitant]
  3. CLONAZEPAM [Concomitant]
  4. LYRICA [Concomitant]

REACTIONS (1)
  - Ectopic pregnancy [Recovered/Resolved]
